FAERS Safety Report 4883667-3 (Version None)
Quarter: 2006Q1

REPORT INFORMATION
  Report Type: 
  Country: None (occurrence: None)
  Receive Date: 20060113
  Receipt Date: 20051227
  Transmission Date: 20060701
  Serious: Yes (Hospitalization, Other)
  Sender: FDA-Public Use
  Company Number: US200601000404

PATIENT
  Age: 80 Year
  Sex: Female

DRUGS (4)
  1. HUMULIN 70/30 [Suspect]
     Indication: DIABETES MELLITUS
  2. HUMULIN 50% REGULAR, 50% NPH(HUMAN INSULIN (RDNA ORIGIN) 50% REGULAR, [Suspect]
     Indication: DIABETES MELLITUS
  3. CARDIZEM [Concomitant]
  4. FOSINOPRIL SODIUM [Concomitant]

REACTIONS (4)
  - AORTIC ANEURYSM [None]
  - HYPOTHYROIDISM [None]
  - PHARMACEUTICAL PRODUCT COMPLAINT [None]
  - RECTAL HAEMORRHAGE [None]
